FAERS Safety Report 14531470 (Version 2)
Quarter: 2018Q1

REPORT INFORMATION
  Report Type: Spontaneous
  Country: IT (occurrence: IT)
  Receive Date: 20180214
  Receipt Date: 20180216
  Transmission Date: 20180509
  Serious: Yes (Death, Other)
  Sender: FDA-Public Use
  Company Number: IT-BRISTOL-MYERS SQUIBB COMPANY-BMS-2018-013554

PATIENT
  Age: 73 Year
  Sex: Male
  Weight: 160.1 kg

DRUGS (1)
  1. OPDIVO [Suspect]
     Active Substance: NIVOLUMAB
     Indication: IMMUNOCHEMOTHERAPY
     Route: 041
     Dates: start: 20170630, end: 20180126

REACTIONS (2)
  - Mesenteric artery thrombosis [Fatal]
  - Infarction [Fatal]

NARRATIVE: CASE EVENT DATE: 20180206
